FAERS Safety Report 20012669 (Version 1)
Quarter: 2021Q4

REPORT INFORMATION
  Report Type: Spontaneous
  Country: US (occurrence: US)
  Receive Date: 20211029
  Receipt Date: 20211029
  Transmission Date: 20220303
  Serious: No
  Sender: FDA-Public Use
  Company Number: US-NOVAST LABORATORIES INC.-2021NOV000241

PATIENT

DRUGS (8)
  1. DEBLITANE [Suspect]
     Active Substance: NORETHINDRONE
     Indication: Heavy menstrual bleeding
     Dosage: 0.35 MILLIGRAM
     Route: 048
     Dates: start: 20210402
  2. DEBLITANE [Suspect]
     Active Substance: NORETHINDRONE
     Indication: Hormone level abnormal
  3. PROZAC [Concomitant]
     Active Substance: FLUOXETINE HYDROCHLORIDE
     Indication: Product used for unknown indication
     Dosage: UNK
     Route: 048
  4. VIBERZI [Concomitant]
     Active Substance: ELUXADOLINE
     Indication: Product used for unknown indication
     Dosage: UNK
     Route: 065
  5. Xanax X [Concomitant]
     Indication: Product used for unknown indication
     Dosage: UNK
     Route: 048
  6. LEVOTHYROXINE [Concomitant]
     Active Substance: LEVOTHYROXINE
     Indication: Product used for unknown indication
     Dosage: UNK
     Route: 048
  7. VITAMIN D [Concomitant]
     Active Substance: VITAMIN D NOS
     Indication: Product used for unknown indication
     Dosage: UNK
     Route: 065
  8. AJOVY [Concomitant]
     Active Substance: FREMANEZUMAB-VFRM
     Indication: Product used for unknown indication
     Dosage: UNK
     Route: 005

REACTIONS (2)
  - Accidental overdose [Unknown]
  - Product use in unapproved indication [Unknown]
